FAERS Safety Report 8103504-3 (Version None)
Quarter: 2011Q4

REPORT INFORMATION
  Report Type: 
  Country: None (occurrence: None)
  Receive Date: 20111222
  Receipt Date: 20110921
  Transmission Date: 20120403
  Serious: Yes (Other)
  Sender: FDA-Public Use
  Company Number: 2011029838

PATIENT
  Sex: Male

DRUGS (1)
  1. BERINERT [Suspect]
     Indication: HEREDITARY ANGIOEDEMA

REACTIONS (4)
  - OEDEMA PERIPHERAL [None]
  - URTICARIA [None]
  - DRUG INEFFECTIVE [None]
  - JOINT SWELLING [None]
